FAERS Safety Report 10404527 (Version 1)
Quarter: 2014Q2

REPORT INFORMATION
  Report Type: Spontaneous
  Country: US (occurrence: None)
  Receive Date: 20140514
  Receipt Date: 20140514
  Transmission Date: 20141212
  Serious: Yes (Hospitalization, Other)
  Sender: FDA-Public Use
  Company Number: 092635

PATIENT
  Sex: Female

DRUGS (3)
  1. CIMZIA [Suspect]
     Dosage: ()?(TO UNKNOWN)
  2. HUMIRA [Suspect]
     Indication: CROHN^S DISEASE
     Dosage: (10/20/2011 TO NOT CONTINUING)?(40 MG 1X/2 WEEKS, 40MG/0.08ML PEN)
  3. KARIVA [Concomitant]

REACTIONS (5)
  - Small intestinal resection [None]
  - Abdominal pain [None]
  - Somnolence [None]
  - Diarrhoea [None]
  - Drug ineffective [None]
